FAERS Safety Report 23897844 (Version 1)
Quarter: 2024Q2

REPORT INFORMATION
  Report Type: Spontaneous
  Country: US (occurrence: US)
  Receive Date: 20240524
  Receipt Date: 20240524
  Transmission Date: 20240716
  Serious: Yes (Other)
  Sender: FDA-Public Use
  Company Number: US-GUERBET / LLC-US-20240081

PATIENT
  Age: 67 Year
  Sex: Male

DRUGS (1)
  1. DOTAREM [Suspect]
     Active Substance: GADOTERATE MEGLUMINE
     Indication: Product used for unknown indication
     Dates: start: 20240512, end: 20240512

REACTIONS (3)
  - Feeling hot [Unknown]
  - Dyspnoea [Unknown]
  - Aphasia [Unknown]

NARRATIVE: CASE EVENT DATE: 20240512
